FAERS Safety Report 20739213 (Version 1)
Quarter: 2022Q2

REPORT INFORMATION
  Report Type: Spontaneous
  Country: US (occurrence: None)
  Receive Date: 20220421
  Receipt Date: 20220421
  Transmission Date: 20220721
  Serious: Yes (Disabling)
  Sender: FDA-Public Use
  Company Number: None

PATIENT
  Age: 55 Year
  Sex: Female
  Weight: 83.25 kg

DRUGS (1)
  1. ATORVASTATIN [Suspect]
     Active Substance: ATORVASTATIN
     Indication: Blood cholesterol increased
     Dosage: OTHER QUANTITY : 1 TABLET(S);?FREQUENCY : AT BEDTIME;?
     Route: 048
     Dates: start: 20200112, end: 20220415

REACTIONS (12)
  - Diarrhoea [None]
  - Rectal haemorrhage [None]
  - Haemorrhoids [None]
  - Sacral pain [None]
  - Irritable bowel syndrome [None]
  - Faeces discoloured [None]
  - Fatigue [None]
  - Renal pain [None]
  - Contusion [None]
  - Insomnia [None]
  - Memory impairment [None]
  - Depression [None]

NARRATIVE: CASE EVENT DATE: 20220415
